FAERS Safety Report 6061820-3 (Version None)
Quarter: 2009Q1

REPORT INFORMATION
  Report Type: 
  Country: None (occurrence: None)
  Receive Date: 20090202
  Receipt Date: 20090121
  Transmission Date: 20090719
  Serious: Yes (Hospitalization)
  Sender: FDA-Public Use
  Company Number: US-ELI_LILLY_AND_COMPANY-US200901003853

PATIENT
  Age: 83 Year
  Sex: Female

DRUGS (11)
  1. BYETTA [Suspect]
     Dosage: UNK, UNKNOWN
     Route: 058
     Dates: start: 20060601, end: 20081001
  2. TORSEMIDE [Concomitant]
  3. GLIPIZIDE [Concomitant]
  4. PLAVIX [Concomitant]
  5. ACTONEL [Concomitant]
  6. MICARDIS [Concomitant]
  7. MELOXICAM [Concomitant]
  8. POTASSIUM CHLORIDE [Concomitant]
  9. COREG [Concomitant]
  10. CADUET [Concomitant]
  11. DITROPAN [Concomitant]

REACTIONS (1)
  - PANCREATITIS ACUTE [None]
